FAERS Safety Report 7429772-9 (Version None)
Quarter: 2011Q2

REPORT INFORMATION
  Report Type: 
  Country: None (occurrence: None)
  Receive Date: 20110421
  Receipt Date: 20110420
  Transmission Date: 20111010
  Serious: Yes (Hospitalization)
  Sender: FDA-Public Use
  Company Number: PHHO2011BE06930

PATIENT
  Sex: Female
  Weight: 78 kg

DRUGS (4)
  1. NEORAL [Concomitant]
     Indication: RENAL TRANSPLANT
     Dosage: 175 MG, BID
     Route: 048
  2. EVEROLIMUS [Suspect]
     Indication: RENAL TRANSPLANT
     Dosage: UNK MG, UNK
     Route: 048
  3. MYFORTIC [Concomitant]
     Indication: RENAL TRANSPLANT
     Dosage: 0.36 G, BID
     Route: 048
  4. MEDROL [Concomitant]
     Indication: RENAL TRANSPLANT
     Dosage: 8 MG

REACTIONS (1)
  - HYDRONEPHROSIS [None]
